FAERS Safety Report 5776717-3 (Version None)
Quarter: 2008Q2

REPORT INFORMATION
  Report Type: 
  Country: None (occurrence: None)
  Receive Date: 20080616
  Receipt Date: 20080609
  Transmission Date: 20081010
  Serious: Yes (Other)
  Sender: FDA-Public Use
  Company Number: 2008SP011200

PATIENT
  Sex: Male

DRUGS (1)
  1. NASONEX [Suspect]
     Indication: NASAL CONGESTION
     Dosage: NAS
     Route: 045

REACTIONS (5)
  - BACK PAIN [None]
  - LACRIMATION INCREASED [None]
  - MENTAL DISORDER [None]
  - MUSCULOSKELETAL PAIN [None]
  - SALIVARY GLAND NEOPLASM [None]
